FAERS Safety Report 19979081 (Version 8)
Quarter: 2022Q2

REPORT INFORMATION
  Report Type: Spontaneous
  Country: GR (occurrence: GR)
  Receive Date: 20211020
  Receipt Date: 20220617
  Transmission Date: 20220720
  Serious: Yes (Life-Threatening, Hospitalization, Other)
  Sender: FDA-Public Use
  Company Number: GR-SUN PHARMACEUTICAL INDUSTRIES LTD-2021R1-313756

PATIENT
  Age: 75 Year
  Sex: Female

DRUGS (41)
  1. KEYTRUDA [Suspect]
     Active Substance: PEMBROLIZUMAB
     Indication: Lung adenocarcinoma stage IV
     Dosage: 200 MILLIGRAM, Q3W, 200 MG FLAT DOSE EVERY 3 WEEKS
     Dates: start: 202007, end: 202008
  2. KEYTRUDA [Suspect]
     Active Substance: PEMBROLIZUMAB
     Dosage: UNK
     Dates: end: 202010
  3. KEYTRUDA [Suspect]
     Active Substance: PEMBROLIZUMAB
     Dosage: UNK, MAINTENANCE TREATMENT
     Dates: start: 202011
  4. KEYTRUDA [Suspect]
     Active Substance: PEMBROLIZUMAB
     Dosage: 200 MILLIGRAM, Q3W, 8TH
     Dates: start: 202007, end: 202012
  5. KEYTRUDA [Suspect]
     Active Substance: PEMBROLIZUMAB
     Dosage: 200 MILLIGRAM
     Dates: start: 20200714
  6. KEYTRUDA [Suspect]
     Active Substance: PEMBROLIZUMAB
     Dosage: 200 MILLIGRAM
     Dates: start: 20200804
  7. KEYTRUDA [Suspect]
     Active Substance: PEMBROLIZUMAB
     Dosage: 200 MILLIGRAM
     Dates: start: 20200825
  8. KEYTRUDA [Suspect]
     Active Substance: PEMBROLIZUMAB
     Dosage: 200 MILLIGRAM
     Dates: start: 20200916
  9. KEYTRUDA [Suspect]
     Active Substance: PEMBROLIZUMAB
     Dosage: 200 MILLIGRAM
     Dates: start: 20201007
  10. KEYTRUDA [Suspect]
     Active Substance: PEMBROLIZUMAB
     Dosage: 200 MILLIGRAM
     Dates: start: 20201029
  11. ALIMTA [Suspect]
     Active Substance: PEMETREXED DISODIUM
     Indication: Lung adenocarcinoma stage IV
     Dosage: 830 MILLIGRAM
     Dates: start: 20200714
  12. ALIMTA [Suspect]
     Active Substance: PEMETREXED DISODIUM
     Dosage: 830 MILLIGRAM
     Dates: start: 20200804
  13. ALIMTA [Suspect]
     Active Substance: PEMETREXED DISODIUM
     Dosage: 830 MILLIGRAM
     Dates: start: 20200825
  14. ALIMTA [Suspect]
     Active Substance: PEMETREXED DISODIUM
     Dosage: 830 MILLIGRAM
     Dates: start: 20200916
  15. ALIMTA [Suspect]
     Active Substance: PEMETREXED DISODIUM
     Dosage: 830 MILLIGRAM
     Dates: start: 20201007
  16. ALIMTA [Suspect]
     Active Substance: PEMETREXED DISODIUM
     Dosage: 830 MILLIGRAM
     Dates: start: 20201029
  17. ALIMTA [Suspect]
     Active Substance: PEMETREXED DISODIUM
     Dosage: 500 MILLIGRAM/SQ. METER, Q3W
     Dates: start: 202007, end: 202008
  18. ALIMTA [Suspect]
     Active Substance: PEMETREXED DISODIUM
     Dosage: MAINTENANCE DOSE WAS RESTARTED
     Dates: start: 202101, end: 2021
  19. ALIMTA [Suspect]
     Active Substance: PEMETREXED DISODIUM
     Dosage: UNK
     Dates: end: 202010
  20. ALIMTA [Suspect]
     Active Substance: PEMETREXED DISODIUM
     Dosage: UNK, MAINTENANCE DOSE
     Dates: start: 20201120, end: 20201211
  21. CARBOPLATIN [Suspect]
     Active Substance: CARBOPLATIN
     Indication: Lung adenocarcinoma stage IV
     Dosage: UNK, Q3W
     Dates: start: 202007, end: 202008
  22. CARBOPLATIN [Suspect]
     Active Substance: CARBOPLATIN
     Dosage: 330 MILLIGRAM
     Dates: end: 202010
  23. CARBOPLATIN [Suspect]
     Active Substance: CARBOPLATIN
     Dosage: 330 MILLIGRAM
     Dates: start: 20200714
  24. CARBOPLATIN [Suspect]
     Active Substance: CARBOPLATIN
     Dosage: 330 MILLIGRAM
     Dates: start: 20200804
  25. CARBOPLATIN [Suspect]
     Active Substance: CARBOPLATIN
     Dosage: 330 MILLIGRAM
     Dates: start: 20200825
  26. CARBOPLATIN [Suspect]
     Active Substance: CARBOPLATIN
     Dosage: 330 MILLIGRAM
     Dates: start: 20200916
  27. CARBOPLATIN [Suspect]
     Active Substance: CARBOPLATIN
     Dosage: 330 MILLIGRAM
     Dates: start: 20201007
  28. CARBOPLATIN [Suspect]
     Active Substance: CARBOPLATIN
     Dosage: 330 MILLIGRAM
     Dates: start: 20201029
  29. TRAMADOL [Concomitant]
     Active Substance: TRAMADOL
     Dosage: 50 MILLIGRAM, PRN
     Route: 048
  30. BUPRENORPHINE [Concomitant]
     Active Substance: BUPRENORPHINE
     Dosage: 35 ?G/H
     Route: 062
  31. ACETAMINOPHEN\CAFFEINE\CODEINE [Concomitant]
     Active Substance: ACETAMINOPHEN\CAFFEINE\CODEINE
     Dosage: 400/10/50 MG PER NEEDED
  32. ENALAPRIL;LERCANIDIPINE [Concomitant]
     Dosage: 10/10 MG ONCE PER DAY
  33. ASPIRIN [Concomitant]
     Active Substance: ASPIRIN
     Dosage: 100 MILLIGRAM, QD
  34. ATORVASTATIN [Concomitant]
     Active Substance: ATORVASTATIN
     Dosage: 20 MILLIGRAM, QD
  35. FLUOXETINE [Concomitant]
     Active Substance: FLUOXETINE HYDROCHLORIDE
     Dosage: 20 MILLIGRAM, QD
  36. BROMAZEPAM [Concomitant]
     Active Substance: BROMAZEPAM
     Dosage: 1.5 MILLIGRAM, QD
  37. LEVOCETIRIZINE [Concomitant]
     Active Substance: LEVOCETIRIZINE
     Dosage: 5 MILLIGRAM, PRN
  38. HYDROXOCOBALAMIN [Concomitant]
     Active Substance: HYDROXOCOBALAMIN
     Dosage: 1 MILLIGRAM, EVERY 6 WEEKS
  39. FOLIC ACID [Concomitant]
     Active Substance: FOLIC ACID
     Dosage: 5 MILLIGRAM, QD
  40. FENTANYL [Concomitant]
     Active Substance: FENTANYL
     Dosage: UNK
     Route: 060
  41. NALOXEGOL [Concomitant]
     Active Substance: NALOXEGOL
     Dosage: UNK
     Route: 060

REACTIONS (2)
  - Appendicitis perforated [Recovering/Resolving]
  - Immune-mediated enterocolitis [Unknown]
